FAERS Safety Report 8807505 (Version 1)
Quarter: 2012Q4

REPORT INFORMATION
  Report Type: 
  Country: US (occurrence: US)
  Receive Date: 20120925
  Receipt Date: 20120925
  Transmission Date: 20130627
  Serious: Yes (Hospitalization, Other)
  Sender: FDA-Public Use
  Company Number: US-PFIZER INC-2012214897

PATIENT
  Age: 51 Year
  Sex: Female
  Weight: 74.83 kg

DRUGS (5)
  1. SUTENT [Suspect]
     Dosage: 50 mg, UNK
     Dates: start: 2009, end: 2009
  2. PROZAC [Concomitant]
     Dosage: UNK
  3. ALLOPURINOL [Concomitant]
     Dosage: UNK
  4. GLIMEPIRIDE [Concomitant]
     Indication: DIABETES MELLITUS
     Dosage: UNK
  5. JANUMET [Concomitant]
     Indication: DIABETES MELLITUS
     Dosage: UNK

REACTIONS (5)
  - Respiratory arrest [Unknown]
  - Hypersensitivity [Unknown]
  - Swelling [Unknown]
  - Rash generalised [Unknown]
  - Drug intolerance [Unknown]
